FAERS Safety Report 7672712-8 (Version None)
Quarter: 2011Q3

REPORT INFORMATION
  Report Type: 
  Country: None (occurrence: None)
  Receive Date: 20110809
  Receipt Date: 20110804
  Transmission Date: 20111222
  Serious: Yes (Other)
  Sender: FDA-Public Use
  Company Number: US-AMGEN-USASP2011038326

PATIENT
  Sex: Male
  Weight: 95.964 kg

DRUGS (4)
  1. NPLATE [Suspect]
     Indication: IDIOPATHIC THROMBOCYTOPENIC PURPURA
     Dosage: 6 A?G/KG, QWK
     Route: 058
     Dates: start: 20110211
  2. RITUXIMAB [Concomitant]
  3. IMMUNOGLOBULINS [Concomitant]
  4. KLOR-CON [Concomitant]
     Dosage: 10 A?G, TID
     Route: 048

REACTIONS (1)
  - NON-HODGKIN'S LYMPHOMA [None]
